FAERS Safety Report 11285135 (Version 1)
Quarter: 2015Q3

REPORT INFORMATION
  Report Type: Spontaneous
  Country: DE (occurrence: DE)
  Receive Date: 20150720
  Receipt Date: 20150720
  Transmission Date: 20151125
  Serious: Yes (Other)
  Sender: FDA-Public Use
  Company Number: DE-MYLANLABS-2015M1023232

PATIENT

DRUGS (1)
  1. VALSARTAN DURA 320 MG FILMTABLETTEN [Suspect]
     Active Substance: VALSARTAN
     Indication: PRODUCT USED FOR UNKNOWN INDICATION
     Dosage: 320 MG, QD
     Route: 048

REACTIONS (7)
  - Condition aggravated [Recovering/Resolving]
  - Dizziness [Unknown]
  - Headache [Unknown]
  - Product substitution issue [Recovered/Resolved]
  - Blood pressure systolic increased [None]
  - Blood pressure fluctuation [Recovered/Resolved]
  - Product substitution issue [None]
